FAERS Safety Report 5487005-7 (Version None)
Quarter: 2007Q4

REPORT INFORMATION
  Report Type: 
  Country: None (occurrence: None)
  Receive Date: 20071016
  Receipt Date: 20071003
  Transmission Date: 20080405
  Serious: Yes (Hospitalization)
  Sender: FDA-Public Use
  Company Number: GB-RANBAXY-2007RR-10503

PATIENT

DRUGS (1)
  1. GABAPENTIN BASICS B 600MG FILMTABLETTEN [Suspect]
     Indication: VULVOVAGINAL DISCOMFORT
     Dosage: 800 MG, QD
     Route: 048
     Dates: start: 20070808

REACTIONS (6)
  - CHEST PAIN [None]
  - COORDINATION ABNORMAL [None]
  - HEADACHE [None]
  - THROAT TIGHTNESS [None]
  - TINNITUS [None]
  - VISION BLURRED [None]
